FAERS Safety Report 9188778 (Version 2)
Quarter: 2013Q1

REPORT INFORMATION
  Report Type: Spontaneous
  Country: NZ (occurrence: NZ)
  Receive Date: 20130326
  Receipt Date: 20130327
  Transmission Date: 20140127
  Serious: Yes (Other)
  Sender: FDA-Public Use
  Company Number: PHHY2013NZ026527

PATIENT
  Age: 3 Year
  Sex: 0

DRUGS (1)
  1. CHLORPHENIRAMINE [Suspect]
     Indication: LOWER RESPIRATORY TRACT INFECTION

REACTIONS (1)
  - Nervous system disorder [Recovered/Resolved]
